FAERS Safety Report 8826456 (Version 1)
Quarter: 2012Q4

REPORT INFORMATION
  Report Type: 
  Country: BR (occurrence: BR)
  Receive Date: 20121005
  Receipt Date: 20121005
  Transmission Date: 20130627
  Serious: Yes (Other)
  Sender: FDA-Public Use
  Company Number: PHHY2012BR085283

PATIENT
  Sex: Female

DRUGS (1)
  1. TRILEPTAL [Suspect]
     Dosage: 600 mg, BID

REACTIONS (2)
  - Foetal death [Unknown]
  - Exposure during pregnancy [Unknown]
